FAERS Safety Report 5472720-1 (Version None)
Quarter: 2007Q4

REPORT INFORMATION
  Report Type: 
  Country: None (occurrence: None)
  Receive Date: 20071001
  Receipt Date: 20070612
  Transmission Date: 20080405
  Serious: No
  Sender: FDA-Public Use
  Company Number: US-ASTRAZENECA-2006UW19952

PATIENT
  Age: 73 Year
  Sex: Female

DRUGS (5)
  1. ARIMIDEX [Suspect]
     Indication: BREAST CANCER FEMALE
     Route: 048
     Dates: start: 20050101
  2. CRESTOR [Concomitant]
     Route: 048
  3. LISINOPRIL [Concomitant]
     Route: 048
  4. VITAMIN [Concomitant]
  5. GARLIC [Concomitant]

REACTIONS (8)
  - ARTHRITIS [None]
  - BREAST DISORDER [None]
  - FATIGUE [None]
  - GAIT DISTURBANCE [None]
  - GROIN PAIN [None]
  - JOINT SWELLING [None]
  - PAIN IN EXTREMITY [None]
  - VAGINAL DISCHARGE [None]
